FAERS Safety Report 9900023 (Version 1)
Quarter: 2014Q1

REPORT INFORMATION
  Report Type: Spontaneous
  Country: US (occurrence: US)
  Receive Date: 20140214
  Receipt Date: 20140214
  Transmission Date: 20141002
  Serious: No
  Sender: FDA-Public Use
  Company Number: US-VIVUS-2014V1000012

PATIENT
  Sex: Female

DRUGS (2)
  1. QSYMIA 7.5MG/46MG [Suspect]
     Indication: PRODUCT USED FOR UNKNOWN INDICATION
     Route: 048
     Dates: start: 20131224
  2. QSYMIA 3.75MG/23MG [Suspect]
     Indication: PRODUCT USED FOR UNKNOWN INDICATION
     Route: 048
     Dates: start: 20131210, end: 20131223

REACTIONS (7)
  - Vomiting [Not Recovered/Not Resolved]
  - Night sweats [Not Recovered/Not Resolved]
  - Ageusia [Not Recovered/Not Resolved]
  - Abdominal pain [Not Recovered/Not Resolved]
  - Chest pain [Not Recovered/Not Resolved]
  - Hypoaesthesia [Not Recovered/Not Resolved]
  - Diarrhoea [Not Recovered/Not Resolved]
